FAERS Safety Report 4871305-5 (Version None)
Quarter: 2005Q4

REPORT INFORMATION
  Report Type: 
  Country: None (occurrence: None)
  Receive Date: 20051229
  Receipt Date: 20051215
  Transmission Date: 20060501
  Serious: Yes (Hospitalization, Other)
  Sender: FDA-Public Use
  Company Number: 2005125385

PATIENT
  Age: 56 Year
  Sex: Male
  Weight: 106.5 kg

DRUGS (6)
  1. NORVASC [Suspect]
     Indication: HYPERTENSION
     Dosage: 10 MG (10 MG, QD INTERVAL: EVERY DAY)
  2. GLUCOPHAGE [Suspect]
     Indication: DIABETES MELLITUS
     Dosage: 500 MG
     Dates: start: 20000101
  3. LOPRESSOR [Concomitant]
  4. LISINOPRIL W/HYDROCHLORTHIAZIDE (HYDROCHLOROTHIAZIDE, LISINOPRIL) [Concomitant]
  5. TAMSULOSIN HCL [Concomitant]
  6. ALLOPURINOL [Concomitant]

REACTIONS (18)
  - ANION GAP DECREASED [None]
  - BLOOD CHLORIDE INCREASED [None]
  - BLOOD GLUCOSE INCREASED [None]
  - BLOOD UREA DECREASED [None]
  - BLOOD UREA NITROGEN/CREATININE RATIO DECREASED [None]
  - CHEST PAIN [None]
  - COUGH [None]
  - DRUG DOSE OMISSION [None]
  - HEART RATE DECREASED [None]
  - HIGH DENSITY LIPOPROTEIN DECREASED [None]
  - HYPERTONIC BLADDER [None]
  - MEDICATION TAMPERING [None]
  - MYOCARDIAL INFARCTION [None]
  - NAUSEA [None]
  - OXYGEN SATURATION DECREASED [None]
  - PROSTATIC DISORDER [None]
  - PROSTATIC SPECIFIC ANTIGEN INCREASED [None]
  - RESPIRATORY RATE INCREASED [None]
